FAERS Safety Report 16776737 (Version 1)
Quarter: 2019Q3

REPORT INFORMATION
  Report Type: Spontaneous
  Country: US (occurrence: US)
  Receive Date: 20190905
  Receipt Date: 20190905
  Transmission Date: 20191005
  Serious: No
  Sender: FDA-Public Use
  Company Number: US-SA-2019SA247027

PATIENT
  Age: 75 Year
  Sex: Female

DRUGS (1)
  1. PRALUENT [Suspect]
     Active Substance: ALIROCUMAB
     Dosage: 75 MG
     Dates: start: 201908

REACTIONS (4)
  - Pain in extremity [Unknown]
  - Muscle spasms [Unknown]
  - Gait disturbance [Unknown]
  - Condition aggravated [Unknown]

NARRATIVE: CASE EVENT DATE: 201908
